FAERS Safety Report 4572444-9 (Version None)
Quarter: 2005Q1

REPORT INFORMATION
  Report Type: 
  Country: None (occurrence: None)
  Receive Date: 20050207
  Receipt Date: 20050128
  Transmission Date: 20050727
  Serious: Yes (Other)
  Sender: FDA-Public Use
  Company Number: AU-GLAXOSMITHKLINE-B0370016A

PATIENT
  Age: 78 Year
  Sex: Female

DRUGS (3)
  1. IMIGRAN [Suspect]
     Indication: MIGRAINE
     Dosage: 100MG SINGLE DOSE
     Route: 048
     Dates: start: 19930610
  2. COVERSYL [Concomitant]
     Indication: ILL-DEFINED DISORDER
     Dosage: 4MG PER DAY
     Route: 065
  3. LASIX [Concomitant]
     Indication: ILL-DEFINED DISORDER
     Dosage: 40MG PER DAY
     Route: 065

REACTIONS (2)
  - CEREBROVASCULAR DISORDER [None]
  - CONFUSIONAL STATE [None]
